FAERS Safety Report 10915881 (Version 1)
Quarter: 2015Q1

REPORT INFORMATION
  Report Type: Report from Study
  Country: FR (occurrence: FR)
  Receive Date: 20150316
  Receipt Date: 20150316
  Transmission Date: 20150721
  Serious: Yes (Death, Hospitalization)
  Sender: FDA-Public Use
  Company Number: FR-SA-2014SA140235

PATIENT
  Age: 63 Year
  Sex: Male
  Weight: 82 kg

DRUGS (1)
  1. CABAZITAXEL [Suspect]
     Active Substance: CABAZITAXEL
     Route: 065

REACTIONS (21)
  - Haemoglobin decreased [Unknown]
  - Insomnia [Unknown]
  - Dysgeusia [Unknown]
  - Proctalgia [Recovered/Resolved]
  - Fatigue [Recovering/Resolving]
  - Dysuria [Recovering/Resolving]
  - Haemorrhoids [Recovered/Resolved]
  - Nausea [Unknown]
  - Diarrhoea [Unknown]
  - Peripheral sensory neuropathy [Unknown]
  - Dyspnoea [Unknown]
  - Death [Fatal]
  - Dysuria [Not Recovered/Not Resolved]
  - Haematuria [Not Recovered/Not Resolved]
  - Weight decreased [Unknown]
  - Decreased appetite [Recovering/Resolving]
  - Pain [Unknown]
  - Drug ineffective [Unknown]
  - Vertigo [Recovering/Resolving]
  - Vomiting [Unknown]
  - Urinary tract infection [Unknown]

NARRATIVE: CASE EVENT DATE: 20120101
